FAERS Safety Report 11589156 (Version 1)
Quarter: 2015Q4

REPORT INFORMATION
  Report Type: Spontaneous
  Country: US (occurrence: None)
  Receive Date: 20151001
  Receipt Date: 20151001
  Transmission Date: 20160304
  Serious: No
  Sender: FDA-Public Use
  Company Number: None

PATIENT
  Age: 44 Year
  Sex: Female

DRUGS (4)
  1. PROGESTERONE 50MG/ML WEST-WARD PHARMACEUTICAL CORP [Suspect]
     Active Substance: PROGESTERONE
     Indication: INFERTILITY FEMALE
     Dosage: DAILY AS DIRECTED
     Route: 030
     Dates: start: 20150818
  2. ESTRADIOL. [Concomitant]
     Active Substance: ESTRADIOL
  3. PREFERAOB [Concomitant]
     Active Substance: .ALPHA.-TOCOPHEROL SUCCINATE, D-\BIOTIN\CALCIUM PANTOTHENATE\CHOLECALCIFEROL\CUPRIC SULFATE\CYANOCOBALAMIN\FOLIC ACID\HEME IRON POLYPEPTIDE\IRON DEXTRAN\NIACINAMIDE\POTASSIUM IODIDE\PYRIDOXINE HYDROCHLORIDE\RIBOFLAVIN\SELENIUM\THIAMINE MONONITRATE\ZINC OXIDE
  4. MINIEVELLE [Concomitant]

REACTIONS (6)
  - Urticaria [None]
  - Injection site erythema [None]
  - Hypersensitivity [None]
  - Swelling [None]
  - Erythema [None]
  - Feeling hot [None]

NARRATIVE: CASE EVENT DATE: 201508
